FAERS Safety Report 9355725 (Version 3)
Quarter: 2014Q1

REPORT INFORMATION
  Report Type: Spontaneous
  Country: US (occurrence: US)
  Receive Date: 20130619
  Receipt Date: 20140214
  Transmission Date: 20141002
  Serious: Yes (Hospitalization)
  Sender: FDA-Public Use
  Company Number: US-B.I. PHARMACEUTICALS,INC./RIDGEFIELD-2013-BI-16746BP

PATIENT
  Sex: Male
  Weight: 72.57 kg

DRUGS (4)
  1. PRADAXA [Suspect]
     Indication: CEREBROVASCULAR ACCIDENT PROPHYLAXIS
     Dates: start: 20120404
  2. PRADAXA [Suspect]
     Indication: THROMBOSIS PROPHYLAXIS
  3. FUROSEMIDE [Concomitant]
     Dates: start: 2005
  4. SIMVASTATIN [Concomitant]
     Dates: start: 2005

REACTIONS (2)
  - Gastrointestinal haemorrhage [Unknown]
  - Myocardial infarction [Unknown]
